FAERS Safety Report 4482384-1 (Version None)
Quarter: 2004Q4

REPORT INFORMATION
  Report Type: 
  Country: None (occurrence: None)
  Receive Date: 20041022
  Receipt Date: 20031110
  Transmission Date: 20050328
  Serious: No
  Sender: FDA-Public Use
  Company Number: US-BRISTOL-MYERS SQUIBB COMPANY-12432001

PATIENT
  Age: 72 Year
  Sex: Female
  Weight: 73 kg

DRUGS (8)
  1. BUSPAR [Suspect]
     Indication: DIVERTICULUM
     Dosage: DOSAGE: 10 MG TWICE DAILY FIRST 3 MONTHS OF TREATMENT.
     Route: 048
  2. LIPITOR [Concomitant]
  3. COZAAR [Concomitant]
  4. COREG [Concomitant]
  5. PLAVIX [Concomitant]
  6. ASPIRIN [Concomitant]
  7. FOLGARD [Concomitant]
  8. PLETAL [Concomitant]

REACTIONS (1)
  - DRUG EFFECT DECREASED [None]
